FAERS Safety Report 23044732 (Version 1)
Quarter: 2023Q4

REPORT INFORMATION
  Report Type: Spontaneous
  Country: US (occurrence: US)
  Receive Date: 20231009
  Receipt Date: 20231009
  Transmission Date: 20240109
  Serious: Yes (Other)
  Sender: FDA-Public Use
  Company Number: US-ACELLA PHARMACEUTICALS, LLC-2023ALO00042

PATIENT
  Sex: Female
  Weight: 67.12 kg

DRUGS (9)
  1. NP THYROID [Suspect]
     Active Substance: LEVOTHYROXINE\LIOTHYRONINE
     Indication: Hypothyroidism
     Dosage: UNK
     Route: 048
     Dates: start: 2013
  2. NP THYROID [Suspect]
     Active Substance: LEVOTHYROXINE\LIOTHYRONINE
     Dosage: 120 MG, 1X/DAY
     Route: 048
  3. NP THYROID [Suspect]
     Active Substance: LEVOTHYROXINE\LIOTHYRONINE
     Dosage: 75 MG, 1X/DAY (60 MG + 30 MG TABLET)
     Route: 048
     Dates: end: 20230815
  4. NP THYROID [Suspect]
     Active Substance: LEVOTHYROXINE\LIOTHYRONINE
     Dosage: 60 MG, 1X/DAY
     Route: 048
     Dates: start: 2023, end: 2023
  5. NP THYROID [Suspect]
     Active Substance: LEVOTHYROXINE\LIOTHYRONINE
     Dosage: 30 MG, 1X/DAY
     Route: 048
     Dates: start: 20230926
  6. FISH OIL [Concomitant]
     Active Substance: FISH OIL
  7. VITAMIN D NOS [Concomitant]
     Active Substance: VITAMIN D NOS
  8. VITAMIN K [Concomitant]
     Active Substance: PHYTONADIONE
  9. COD LIVER OIL [Concomitant]
     Active Substance: COD LIVER OIL

REACTIONS (5)
  - Atrial fibrillation [Not Recovered/Not Resolved]
  - Alopecia [Unknown]
  - Intentional product use issue [Unknown]
  - Blood thyroid stimulating hormone increased [Not Recovered/Not Resolved]
  - Drug interaction [Not Recovered/Not Resolved]

NARRATIVE: CASE EVENT DATE: 20230101
